FAERS Safety Report 15337026 (Version 3)
Quarter: 2018Q4

REPORT INFORMATION
  Report Type: Other
  Country: DE (occurrence: DE)
  Receive Date: 20180831
  Receipt Date: 20181108
  Transmission Date: 20190204
  Serious: Yes (Other)
  Sender: FDA-Public Use
  Company Number: DE-MERCK KGAA-2054511

PATIENT
  Age: 40 Year
  Sex: Female

DRUGS (10)
  1. SITAGLIPTIN PHOSPHATE [Suspect]
     Active Substance: SITAGLIPTIN PHOSPHATE
     Route: 048
     Dates: start: 20130310, end: 20130425
  2. FOLIC ACID. [Suspect]
     Active Substance: FOLIC ACID
     Route: 048
  3. SITAGLIPTIN [Suspect]
     Active Substance: SITAGLIPTIN
  4. EUTHYROX [Suspect]
     Active Substance: LEVOTHYROXINE SODIUM
     Indication: TYPE 2 DIABETES MELLITUS
     Route: 048
     Dates: start: 20130310, end: 20131113
  5. METHYLDOPA. [Suspect]
     Active Substance: METHYLDOPA
     Route: 048
     Dates: start: 20130502, end: 20131113
  6. METFORMIN [Suspect]
     Active Substance: METFORMIN HYDROCHLORIDE
     Route: 048
     Dates: start: 20130310, end: 20130425
  7. INSULIN HUMAN [Suspect]
     Active Substance: INSULIN HUMAN
  8. METOPROLOL. [Suspect]
     Active Substance: METOPROLOL
     Route: 048
     Dates: start: 20130502, end: 20131113
  9. IODINE. [Suspect]
     Active Substance: IODINE
  10. RAMIPRIL. [Suspect]
     Active Substance: RAMIPRIL
     Route: 048
     Dates: start: 20130310, end: 20130425

REACTIONS (4)
  - Placental insufficiency [Unknown]
  - Polyhydramnios [Unknown]
  - Exposure during pregnancy [Unknown]
  - Caesarean section [Unknown]
